FAERS Safety Report 8738528 (Version 2)
Quarter: 2012Q4

REPORT INFORMATION
  Report Type: Report from Study
  Country: DE (occurrence: DE)
  Receive Date: 20120823
  Receipt Date: 20120904
  Transmission Date: 20130627
  Serious: Yes (Other)
  Sender: FDA-Public Use
  Company Number: DE-PFIZER INC-2012203354

PATIENT
  Age: 44 Year
  Sex: Male

DRUGS (3)
  1. IBUPROFEN [Suspect]
     Dosage: UNK
  2. SINUPRET [Suspect]
     Indication: VIRAL INFECTION
     Dosage: UNK
  3. UNSPECIFIED INGREDIENT [Suspect]
     Indication: VIRAL INFECTION
     Dosage: UNK
     Dates: start: 200802

REACTIONS (2)
  - Alcoholic liver disease [Unknown]
  - Hepatotoxicity [Unknown]
